FAERS Safety Report 8306231-2 (Version None)
Quarter: 2012Q2

REPORT INFORMATION
  Report Type: 
  Country: None (occurrence: None)
  Receive Date: 20120423
  Receipt Date: 20120417
  Transmission Date: 20120825
  Serious: Yes (Hospitalization)
  Sender: FDA-Public Use
  Company Number: US-ROCHE-1060527

PATIENT
  Sex: Male

DRUGS (4)
  1. RIBAVIRIN [Suspect]
     Indication: HEPATITIS C
  2. PEGASYS [Suspect]
     Indication: HEPATITIS C
     Route: 058
     Dates: end: 20120412
  3. RIBAVIRIN [Suspect]
     Dates: start: 20120413
  4. TELAPREVIR [Suspect]
     Indication: HEPATITIS C

REACTIONS (7)
  - WHITE BLOOD CELL COUNT DECREASED [None]
  - INSOMNIA [None]
  - RASH [None]
  - PLATELET COUNT DECREASED [None]
  - HEADACHE [None]
  - RED BLOOD CELL COUNT DECREASED [None]
  - PYREXIA [None]
